FAERS Safety Report 19304741 (Version 1)
Quarter: 2021Q2

REPORT INFORMATION
  Report Type: Other
  Country: US (occurrence: US)
  Receive Date: 20210525
  Receipt Date: 20210525
  Transmission Date: 20210717
  Serious: Yes (Other)
  Sender: FDA-Public Use
  Company Number: US-FRESENIUS KABI-FK202105244

PATIENT
  Age: 3 Year
  Sex: Female

DRUGS (4)
  1. TOPOTECAN [Suspect]
     Active Substance: TOPOTECAN HYDROCHLORIDE
     Indication: RHABDOID TUMOUR
     Dosage: INTRATHECAL THIOTEPA/ETOPOSIDE/TOPOTECAN VIA AN OMMAYA RESERVOIR WAS STARTED ALONG WITH ALISERTIB, A
     Route: 037
  2. THIOTEPA. [Suspect]
     Active Substance: THIOTEPA
     Indication: ARTHRITIS HELMINTHIC
     Dosage: INTRATHECAL THIOTEPA/ETOPOSIDE/TOPOTECAN VIA AN OMMAYA RESERVOIR WAS STARTED ALONG WITH ALISERTIB, A
     Route: 037
  3. ETOPOSIDE (MANUFACTURER UNKNOWN) [Suspect]
     Active Substance: ETOPOSIDE
     Indication: RHABDOID TUMOUR
     Dosage: INTRATHECAL THIOTEPA/ETOPOSIDE/TOPOTECAN VIA AN OMMAYA RESERVOIR WAS STARTED ALONG WITH ALISERTIB, A
     Route: 037
  4. ALISERTIB [Suspect]
     Active Substance: ALISERTIB
     Indication: RHABDOID TUMOUR
     Dosage: INTRATHECAL THIOTEPA/ETOPOSIDE/TOPOTECAN VIA AN OMMAYA RESERVOIR WAS STARTED ALONG WITH ALISERTIB, A
     Route: 065

REACTIONS (1)
  - Myelodysplastic syndrome [Recovering/Resolving]
